FAERS Safety Report 15279096 (Version 1)
Quarter: 2018Q3

REPORT INFORMATION
  Report Type: Spontaneous
  Country: US (occurrence: US)
  Receive Date: 20180730
  Receipt Date: 20180730
  Transmission Date: 20181010
  Serious: Yes (Congenital Anomaly, Other)
  Sender: FDA-Public Use
  Company Number: None

PATIENT
  Age: 65 Year
  Sex: Female
  Weight: 45 kg

DRUGS (6)
  1. VITAMIN B12 [Concomitant]
     Active Substance: CYANOCOBALAMIN
  2. TOPIRAMATE. [Concomitant]
     Active Substance: TOPIRAMATE
  3. AMPYRA [Concomitant]
     Active Substance: DALFAMPRIDINE
  4. MYLAN GLATIRAMER ACETATE (A GENERIC FOR COPOXONE) PRE?FILLED SYRINGE. [Suspect]
     Active Substance: GLATIRAMER ACETATE
     Indication: MULTIPLE SCLEROSIS
     Dosage: ?          QUANTITY:30 INJECTION(S);?
     Route: 058
     Dates: start: 20180724, end: 20180730
  5. BACLOFEN. [Concomitant]
     Active Substance: BACLOFEN
  6. VITAMIN D3 [Concomitant]
     Active Substance: CHOLECALCIFEROL

REACTIONS (4)
  - Pain [None]
  - Product substitution issue [None]
  - Muscle spasms [None]
  - Therapy cessation [None]

NARRATIVE: CASE EVENT DATE: 20180727
